FAERS Safety Report 20615272 (Version 2)
Quarter: 2022Q2

REPORT INFORMATION
  Report Type: Other
  Country: JP (occurrence: JP)
  Receive Date: 20220321
  Receipt Date: 20220526
  Transmission Date: 20220721
  Serious: Yes (Hospitalization, Other)
  Sender: FDA-Public Use
  Company Number: JP-CHUGAI-2022008465

PATIENT
  Age: 71 Year
  Sex: Male
  Weight: 84.7 kg

DRUGS (2)
  1. ATEZOLIZUMAB [Suspect]
     Active Substance: ATEZOLIZUMAB
     Indication: Hepatocellular carcinoma
     Dosage: SINGLE
     Route: 041
     Dates: start: 20210823, end: 20210823
  2. BEVACIZUMAB [Suspect]
     Active Substance: BEVACIZUMAB
     Indication: Hepatocellular carcinoma
     Route: 041
     Dates: start: 20210823, end: 20210823

REACTIONS (3)
  - Pleural effusion [Recovered/Resolved]
  - Pleurisy [Unknown]
  - Pyrexia [Unknown]

NARRATIVE: CASE EVENT DATE: 20210903
